FAERS Safety Report 16012913 (Version 4)
Quarter: 2020Q4

REPORT INFORMATION
  Report Type: Other
  Country: US (occurrence: US)
  Receive Date: 20190227
  Receipt Date: 20201001
  Transmission Date: 20210113
  Serious: No
  Sender: FDA-Public Use
  Company Number: US-ROCHE-2159435

PATIENT
  Age: 67 Year
  Sex: Female
  Weight: 68.1 kg

DRUGS (10)
  1. LYRICA [Concomitant]
     Active Substance: PREGABALIN
  2. BOTOX [Concomitant]
     Active Substance: ONABOTULINUMTOXINA
  3. BUTALBITAL, ACETAMINOPHEN, AND CAFFEINE [Concomitant]
     Active Substance: ACETAMINOPHEN\BUTALBITAL\CAFFEINE
  4. OCREVUS [Suspect]
     Active Substance: OCRELIZUMAB
     Indication: RELAPSING-REMITTING MULTIPLE SCLEROSIS
     Dosage: ONCE EVERY 6 WEEKS, ONGOING: NO?DATE OF TREATMENT = 01/AUG/2018, 01/FEB/2019, 02/AUG/2019, 13/MAR/20
     Route: 042
     Dates: start: 201801
  5. OCREVUS [Suspect]
     Active Substance: OCRELIZUMAB
     Dosage: SECOND HALF DOSE?ONCE EVERY 6 MONTHS.
     Route: 042
     Dates: start: 201802
  6. OCREVUS [Suspect]
     Active Substance: OCRELIZUMAB
     Route: 042
     Dates: start: 201802
  7. NEXIUM [Concomitant]
     Active Substance: ESOMEPRAZOLE MAGNESIUM
  8. HYDROCODONE [Concomitant]
     Active Substance: HYDROCODONE
  9. MODAFINIL. [Concomitant]
     Active Substance: MODAFINIL
  10. TYLENOL [Concomitant]
     Active Substance: ACETAMINOPHEN

REACTIONS (5)
  - Ear pruritus [Recovered/Resolved]
  - Cognitive disorder [Not Recovered/Not Resolved]
  - Somnolence [Recovered/Resolved]
  - Influenza [Recovering/Resolving]
  - Throat irritation [Recovered/Resolved]

NARRATIVE: CASE EVENT DATE: 20190201
